FAERS Safety Report 13493657 (Version 1)
Quarter: 2017Q2

REPORT INFORMATION
  Report Type: Spontaneous
  Country: US (occurrence: US)
  Receive Date: 20170427
  Receipt Date: 20170427
  Transmission Date: 20170830
  Serious: No
  Sender: FDA-Public Use
  Company Number: US-ROCHE-1326991

PATIENT
  Age: 73 Year
  Sex: Male
  Weight: 90.8 kg

DRUGS (3)
  1. ERIVEDGE [Suspect]
     Active Substance: VISMODEGIB
     Route: 048
     Dates: start: 20131005, end: 20140107
  2. ERIVEDGE [Suspect]
     Active Substance: VISMODEGIB
     Indication: BASAL CELL CARCINOMA
     Route: 048
     Dates: start: 20130828, end: 20131231
  3. ASPIRIN. [Concomitant]
     Active Substance: ASPIRIN
     Route: 065

REACTIONS (9)
  - Nausea [Unknown]
  - Alopecia [Unknown]
  - Chills [Unknown]
  - Insomnia [Unknown]
  - Salt craving [Unknown]
  - Fatigue [Unknown]
  - Therapy cessation [Recovered/Resolved]
  - Headache [Unknown]
  - Muscle spasms [Unknown]

NARRATIVE: CASE EVENT DATE: 201309
